FAERS Safety Report 8610894 (Version 3)
Quarter: 2012Q4

REPORT INFORMATION
  Report Type: 
  Country: US (occurrence: US)
  Receive Date: 20120612
  Receipt Date: 20120830
  Transmission Date: 20130627
  Serious: Yes (Hospitalization)
  Sender: FDA-Public Use
  Company Number: US-ACTELION-A-NJ2012-66781

PATIENT
  Age: 49 Year
  Sex: Female

DRUGS (2)
  1. TRACLEER [Suspect]
     Indication: PULMONARY ARTERIAL HYPERTENSION
     Dosage: UNK
     Route: 048
  2. ADCIRCA [Concomitant]

REACTIONS (6)
  - Renal failure [Unknown]
  - Dehydration [Unknown]
  - Nausea [Unknown]
  - Vomiting [Unknown]
  - Drug dose omission [Unknown]
  - Asthenia [Unknown]
